FAERS Safety Report 6004381-7 (Version None)
Quarter: 2008Q4

REPORT INFORMATION
  Report Type: 
  Country: None (occurrence: None)
  Receive Date: 20081216
  Receipt Date: 20081209
  Transmission Date: 20090506
  Serious: Yes (Death)
  Sender: FDA-Public Use
  Company Number: FR-ELI_LILLY_AND_COMPANY-FR200805002312

PATIENT
  Sex: Male

DRUGS (3)
  1. GEMZAR [Suspect]
     Indication: LUNG CANCER METASTATIC
     Dosage: 1300 MG, OTHER
     Route: 042
     Dates: start: 20080107
  2. GEMZAR [Suspect]
     Dosage: 40% OF THE INITIAL DOSAGE, OTHER
     Route: 065
     Dates: start: 20080114
  3. CISPLATIN [Concomitant]
     Indication: LUNG CANCER METASTATIC
     Dosage: UNK, OTHER
     Route: 042
     Dates: start: 20080107

REACTIONS (4)
  - BONE MARROW FAILURE [None]
  - CARDIAC FAILURE [None]
  - CARDIOPULMONARY FAILURE [None]
  - GENERALISED OEDEMA [None]
